FAERS Safety Report 5157241-8 (Version None)
Quarter: 2006Q4

REPORT INFORMATION
  Report Type: 
  Country: None (occurrence: None)
  Receive Date: 20061115
  Receipt Date: 20061109
  Transmission Date: 20070319
  Serious: Yes (Other)
  Sender: FDA-Public Use
  Company Number: 06111918

PATIENT
  Age: 28 Year
  Sex: Male

DRUGS (1)
  1. CLOBETASOL PROPIONATE [Suspect]
     Indication: DERMATITIS CONTACT
     Dosage: BID, TOPICAL
     Route: 061

REACTIONS (2)
  - DYSGEUSIA [None]
  - HEART RATE INCREASED [None]
